FAERS Safety Report 17219053 (Version 3)
Quarter: 2020Q3

REPORT INFORMATION
  Report Type: Spontaneous
  Country: JP (occurrence: JP)
  Receive Date: 20191231
  Receipt Date: 20200804
  Transmission Date: 20201102
  Serious: Yes (Hospitalization)
  Sender: FDA-Public Use
  Company Number: JP-JNJFOC-20191247059

PATIENT
  Age: 80 Year
  Sex: Female

DRUGS (13)
  1. METOLATE [Concomitant]
     Active Substance: METHOTREXATE
     Dosage: 6 MILLIGRAM, 1/WEEK
     Route: 048
     Dates: start: 1999
  2. REMICADE [Suspect]
     Active Substance: INFLIXIMAB
     Dosage: 300 MILLIGRAM, QD
     Route: 042
     Dates: start: 20051011
  3. METHOTREXATE. [Concomitant]
     Active Substance: METHOTREXATE
     Indication: RHEUMATOID ARTHRITIS
     Dosage: 8 MILLIGRAM, 1/WEEK
     Route: 048
     Dates: start: 20000727
  4. REMICADE [Suspect]
     Active Substance: INFLIXIMAB
     Dosage: 640 MILLIGRAM, QD
     Route: 042
     Dates: start: 20100817, end: 20100817
  5. REMICADE [Suspect]
     Active Substance: INFLIXIMAB
     Dosage: 600 MILLIGRAM, QD
     Route: 042
     Dates: start: 20180806, end: 20180806
  6. REMICADE [Suspect]
     Active Substance: INFLIXIMAB
     Indication: RHEUMATOID ARTHRITIS
     Dosage: 200 MILLIGRAM, QD
     Route: 042
     Dates: start: 20040707
  7. REMICADE [Suspect]
     Active Substance: INFLIXIMAB
     Dosage: 600 MILLIGRAM, QD
     Route: 042
     Dates: start: 20101012
  8. BUCILLAMINE [Concomitant]
     Active Substance: BUCILLAMINE
     Route: 065
  9. SULFASALAZINE. [Concomitant]
     Active Substance: SULFASALAZINE
     Route: 065
  10. REMICADE [Suspect]
     Active Substance: INFLIXIMAB
     Dosage: 400 MILLIGRAM, QD
     Route: 042
     Dates: start: 20100427
  11. PURSENNID                          /00571902/ [Concomitant]
     Active Substance: SENNOSIDES A AND B
     Dosage: 24 MILLIGRAM, QD
     Route: 048
     Dates: start: 1999
  12. FOLIAMIN [Concomitant]
     Active Substance: FOLIC ACID
     Indication: FOLATE DEFICIENCY
     Dosage: 5 MILLIGRAM, 1/WEEK
     Route: 048
     Dates: start: 1999
  13. FOLIAMIN [Concomitant]
     Active Substance: FOLIC ACID
     Dosage: 5 MILLIGRAM, QD
     Route: 048
     Dates: start: 20000727

REACTIONS (1)
  - Papillary thyroid cancer [Recovering/Resolving]

NARRATIVE: CASE EVENT DATE: 20180906
